FAERS Safety Report 7075357-6 (Version None)
Quarter: 2010Q4

REPORT INFORMATION
  Report Type: 
  Country: None (occurrence: None)
  Receive Date: 20101030
  Receipt Date: 20100813
  Transmission Date: 20110411
  Serious: No
  Sender: FDA-Public Use
  Company Number: US-WYE-H16928410

PATIENT
  Age: 47 Year
  Sex: Male
  Weight: 110.78 kg

DRUGS (2)
  1. ADVIL PM [Suspect]
     Indication: INSOMNIA
     Dosage: 2 CAPLETS AS NEEDED ALMOST NIGHTLY
     Route: 048
     Dates: start: 20090101
  2. ETHANOL [Concomitant]

REACTIONS (2)
  - DRY MOUTH [None]
  - SWELLING FACE [None]
